FAERS Safety Report 7215591-5 (Version None)
Quarter: 2011Q1

REPORT INFORMATION
  Report Type: 
  Country: None (occurrence: None)
  Receive Date: 20110104
  Receipt Date: 20110104
  Transmission Date: 20110831
  Serious: Yes (Other)
  Sender: FDA-Public Use
  Company Number: None

PATIENT
  Sex: Female
  Weight: 63.5036 kg

DRUGS (1)
  1. DIFLUNISAL [Suspect]
     Indication: ARTHRALGIA
     Dosage: ONE AS NEEDED PO
     Route: 048
     Dates: start: 20070105, end: 20100101

REACTIONS (7)
  - IMPAIRED HEALING [None]
  - BURNING SENSATION [None]
  - BLISTER [None]
  - PRURITUS [None]
  - ERYTHEMA [None]
  - PAIN IN EXTREMITY [None]
  - URTICARIA [None]
